FAERS Safety Report 7673239-X (Version None)
Quarter: 2011Q3

REPORT INFORMATION
  Report Type: 
  Country: None (occurrence: None)
  Receive Date: 20110810
  Receipt Date: 20110808
  Transmission Date: 20111222
  Serious: Yes (Other)
  Sender: FDA-Public Use
  Company Number: US-PFIZER INC-2011181532

PATIENT
  Sex: Female
  Weight: 47.62 kg

DRUGS (1)
  1. LIPITOR [Suspect]
     Dosage: UNK
     Dates: start: 20020101, end: 20020101

REACTIONS (3)
  - MUSCULOSKELETAL DISCOMFORT [None]
  - MYALGIA [None]
  - LIMB INJURY [None]
